FAERS Safety Report 5532220-7 (Version None)
Quarter: 2007Q4

REPORT INFORMATION
  Report Type: 
  Country: None (occurrence: None)
  Receive Date: 20071129
  Receipt Date: 20071129
  Transmission Date: 20080405
  Serious: Yes (Other)
  Sender: FDA-Public Use
  Company Number: None

PATIENT
  Sex: Female
  Weight: 97.5234 kg

DRUGS (1)
  1. OXCARBAZEPINE [Suspect]
     Dosage: 150MG BID PO : 300 MG BID PO
     Route: 048
     Dates: start: 20071022, end: 20071119

REACTIONS (3)
  - RESTLESSNESS [None]
  - SUICIDAL IDEATION [None]
  - THERAPEUTIC RESPONSE UNEXPECTED WITH DRUG SUBSTITUTION [None]
